FAERS Safety Report 8200544-0 (Version None)
Quarter: 2012Q1

REPORT INFORMATION
  Report Type: 
  Country: None (occurrence: None)
  Receive Date: 20120308
  Receipt Date: 20120223
  Transmission Date: 20120608
  Serious: Yes (Hospitalization)
  Sender: FDA-Public Use
  Company Number: DSA_55284_2012

PATIENT
  Age: 78 Year
  Sex: Female

DRUGS (8)
  1. DILTIAZEM HYDROCHLORIDE [Suspect]
     Indication: PRODUCT USED FOR UNKNOWN INDICATION
     Dosage: (300 MG QD ORAL)
     Route: 048
     Dates: end: 20110923
  2. CORDARONE [Suspect]
     Indication: ARRHYTHMIA
     Dosage: (100 MG QD ORAL)
     Route: 048
     Dates: end: 20110923
  3. PREVISCAN /00789001/ (PREVISCAN FLUINDIONE) (NOT SPECIFIED) [Suspect]
     Indication: PRODUCT USED FOR UNKNOWN INDICATION
     Dosage: (DF ORAL)
     Route: 048
     Dates: end: 20110921
  4. VALSARTAN [Concomitant]
  5. LASIX [Concomitant]
  6. CORTICOSTEROIDS [Concomitant]
  7. DIGOXIN [Suspect]
     Indication: PRODUCT USED FOR UNKNOWN INDICATION
     Dosage: (DF ORAL)
     Route: 048
     Dates: end: 20110921
  8. AMLODIPINE BESYLATE [Concomitant]

REACTIONS (11)
  - MITRAL VALVE INCOMPETENCE [None]
  - SPINAL MYELOGRAM ABNORMAL [None]
  - PULMONARY ARTERIAL HYPERTENSION [None]
  - LUNG DISORDER [None]
  - PULMONARY OEDEMA [None]
  - CARDIOMEGALY [None]
  - INTERSTITIAL LUNG DISEASE [None]
  - RESPIRATORY FAILURE [None]
  - RENAL FAILURE [None]
  - PULMONARY FIBROSIS [None]
  - NORMOCHROMIC NORMOCYTIC ANAEMIA [None]
